FAERS Safety Report 17508459 (Version 1)
Quarter: 2020Q1

REPORT INFORMATION
  Report Type: Spontaneous
  Country: FR (occurrence: FR)
  Receive Date: 20200306
  Receipt Date: 20200306
  Transmission Date: 20200409
  Serious: Yes (Hospitalization, Other)
  Sender: FDA-Public Use
  Company Number: FR-ACCORD-175001

PATIENT
  Age: 84 Year
  Sex: Male

DRUGS (2)
  1. CARBOPLATIN. [Suspect]
     Active Substance: CARBOPLATIN
     Indication: TRANSITIONAL CELL CARCINOMA
  2. GEMCITABINE/GEMCITABINE HYDROCHLORIDE [Suspect]
     Active Substance: GEMCITABINE\GEMCITABINE HYDROCHLORIDE
     Indication: TRANSITIONAL CELL CARCINOMA

REACTIONS (11)
  - Autonomic nervous system imbalance [Recovering/Resolving]
  - Haemolytic uraemic syndrome [Recovering/Resolving]
  - Psychomotor skills impaired [Recovering/Resolving]
  - Fall [Unknown]
  - Decubitus ulcer [Recovering/Resolving]
  - Apathy [Recovering/Resolving]
  - Asthenia [Recovering/Resolving]
  - Psychiatric decompensation [Recovering/Resolving]
  - Malnutrition [Recovering/Resolving]
  - Pyelonephritis [Recovering/Resolving]
  - Left ventricular failure [Recovering/Resolving]
